FAERS Safety Report 7229283 (Version 6)
Quarter: 2020Q3

REPORT INFORMATION
  Report Type: Report from Study
  Country: JP (occurrence: JP)
  Receive Date: 20091223
  Receipt Date: 20100212
  Transmission Date: 20201104
  Serious: Yes (Hospitalization)
  Sender: FDA-Public Use
  Company Number: JP-JNJFOC-20091203957

PATIENT
  Age: 26 Year
  Sex: Male
  Weight: 70 kg

DRUGS (18)
  1. AZATHIOPRINE. [Concomitant]
     Active Substance: AZATHIOPRINE
     Indication: COLITIS ULCERATIVE
     Route: 048
  2. LAC B [Concomitant]
     Active Substance: BIFIDOBACTERIUM SPP.
     Route: 048
  3. FLOMOX [CEFCAPENE PIVOXIL HYDROCHLORIDE] [Concomitant]
     Active Substance: CEFCAPENE PIVOXIL HYDROCHLORIDE
     Route: 048
  4. BIOFERMIN?R [Concomitant]
     Route: 048
  5. ISONIAZID. [Concomitant]
     Active Substance: ISONIAZID
     Route: 048
  6. ELENTAL [Concomitant]
     Active Substance: AMINO ACIDS\CARBOHYDRATES\MINERALS\SOYBEAN OIL\VITAMINS
     Route: 048
  7. GOLIMUMAB [Suspect]
     Active Substance: GOLIMUMAB
     Indication: COLITIS ULCERATIVE
     Route: 058
  8. GOLIMUMAB [Suspect]
     Active Substance: GOLIMUMAB
     Indication: COLITIS ULCERATIVE
     Route: 058
  9. PLACEBO [Suspect]
     Active Substance: UNSPECIFIED INGREDIENT
     Indication: COLITIS ULCERATIVE
     Route: 058
  10. LEVOFLOXACIN. [Concomitant]
     Active Substance: LEVOFLOXACIN
     Route: 048
  11. PARIET [Concomitant]
     Active Substance: RABEPRAZOLE SODIUM
     Route: 048
  12. ISODINE [Concomitant]
     Active Substance: POVIDONE-IODINE
     Route: 061
  13. PYRIDOXAL PHOSPHATE [Concomitant]
     Active Substance: PYRIDOXAL PHOSPHATE
     Route: 048
  14. REBAMIPIDE [Concomitant]
     Active Substance: REBAMIPIDE
     Route: 048
  15. LOXONIN [Concomitant]
     Active Substance: LOXOPROFEN SODIUM
     Route: 048
  16. PLACEBO [Suspect]
     Active Substance: UNSPECIFIED INGREDIENT
     Indication: COLITIS ULCERATIVE
     Route: 058
  17. MESALAZINE [Concomitant]
     Active Substance: MESALAMINE
     Indication: COLITIS ULCERATIVE
     Route: 048
  18. TERRA?CORTRIL [Concomitant]
     Active Substance: HYDROCORTISONE ACETATE\OXYTETRACYCLINE HYDROCHLORIDE
     Route: 048

REACTIONS (2)
  - Cytomegalovirus infection [Recovered/Resolved]
  - Pyrexia [Recovered/Resolved]

NARRATIVE: CASE EVENT DATE: 20091201
